FAERS Safety Report 14789523 (Version 1)
Quarter: 2018Q2

REPORT INFORMATION
  Report Type: Spontaneous
  Country: US (occurrence: US)
  Receive Date: 20180423
  Receipt Date: 20180423
  Transmission Date: 20180711
  Serious: No
  Sender: FDA-Public Use
  Company Number: US-TEVA-2018-US-867188

PATIENT
  Sex: Female

DRUGS (2)
  1. ATENOLOL TEVA [Suspect]
     Active Substance: ATENOLOL
     Dosage: 100 MG
  2. ATENOLOL TEVA [Suspect]
     Active Substance: ATENOLOL
     Dosage: 50 MG

REACTIONS (5)
  - Heart rate decreased [Unknown]
  - Product odour abnormal [Unknown]
  - Heart rate irregular [Unknown]
  - Dyspnoea [Unknown]
  - Blood pressure increased [Unknown]
